FAERS Safety Report 7443126-0 (Version None)
Quarter: 2011Q2

REPORT INFORMATION
  Report Type: 
  Country: None (occurrence: None)
  Receive Date: 20110428
  Receipt Date: 20110426
  Transmission Date: 20111010
  Serious: Yes (Death)
  Sender: FDA-Public Use
  Company Number: A0745211A

PATIENT
  Age: 6 Year
  Sex: Female
  Weight: 22.7 kg

DRUGS (5)
  1. ADVAIR DISKUS 100/50 [Suspect]
     Indication: ASTHMA
     Dosage: 2PUFF TWICE PER DAY
     Route: 055
     Dates: start: 20080501
  2. ALBUTEROL [Concomitant]
     Indication: ASTHMA
     Dosage: 2PUFF AS REQUIRED
     Route: 045
     Dates: start: 20060313
  3. ADVAIR DISKUS 100/50 [Suspect]
     Route: 055
  4. ALBUTEROL [Concomitant]
     Indication: ASTHMA
     Dosage: 1NEB AS REQUIRED
     Route: 055
     Dates: start: 20060313
  5. ELOCON [Concomitant]
     Indication: ECZEMA
     Route: 061
     Dates: start: 20060313

REACTIONS (8)
  - HYPOXIA [None]
  - RESUSCITATION [None]
  - DYSPNOEA EXERTIONAL [None]
  - CARDIO-RESPIRATORY ARREST [None]
  - DEPRESSED LEVEL OF CONSCIOUSNESS [None]
  - CARDIAC ARREST [None]
  - STATUS ASTHMATICUS [None]
  - RESPIRATORY ARREST [None]
